FAERS Safety Report 5033639-3 (Version None)
Quarter: 2006Q2

REPORT INFORMATION
  Report Type: 
  Country: None (occurrence: None)
  Receive Date: 20060623
  Receipt Date: 20060615
  Transmission Date: 20061013
  Serious: Yes (Death, Hospitalization)
  Sender: FDA-Public Use
  Company Number: US-SANOFI-SYNTHELABO-F03200600133

PATIENT
  Age: 66 Year
  Sex: Male

DRUGS (13)
  1. GEMCITABINE HYDROCHLORIDE [Suspect]
     Indication: ADENOCARCINOMA PANCREAS
     Route: 042
     Dates: start: 20050915, end: 20050915
  2. AVASTIN [Suspect]
     Indication: ADENOCARCINOMA PANCREAS
     Route: 042
     Dates: start: 20050915, end: 20050915
  3. OXALIPLATIN [Suspect]
     Indication: ADENOCARCINOMA PANCREAS
     Route: 042
     Dates: start: 20050916, end: 20050916
  4. ACETAMINOPHEN [Concomitant]
     Dosage: UNK
     Route: 048
  5. GLUCOSAMINE [Concomitant]
     Dosage: UNK
     Route: 048
  6. FOLIC ACID [Concomitant]
     Dosage: UNK
     Route: 048
  7. MULTIVITAMIN [Concomitant]
     Dosage: UNK
     Route: 048
  8. MINERAL TAB [Concomitant]
     Dosage: UNK
     Route: 065
  9. ESOMEPRAZOLE MAGNESIUM [Concomitant]
     Dosage: UNK
     Route: 048
  10. SENOKOT [Concomitant]
     Dosage: UNK
     Route: 048
  11. PERCOCET [Concomitant]
     Dosage: UNK
     Route: 048
  12. GLYCERYL TRINITRATE [Concomitant]
     Dosage: UNK
     Route: 065
  13. FLOMAX [Concomitant]
     Dosage: UNK
     Route: 048

REACTIONS (5)
  - ANAL FISSURE [None]
  - CONSTIPATION [None]
  - DISEASE PROGRESSION [None]
  - DRUG EFFECT DECREASED [None]
  - PROCTITIS [None]
